FAERS Safety Report 16910552 (Version 1)
Quarter: 2019Q4

REPORT INFORMATION
  Report Type: Spontaneous
  Country: IT (occurrence: IT)
  Receive Date: 20191011
  Receipt Date: 20191011
  Transmission Date: 20200122
  Serious: No
  Sender: FDA-Public Use
  Company Number: IT-JAZZ-JPI-P-006531

PATIENT
  Age: 16 Year
  Sex: Male

DRUGS (13)
  1. ALCOHOL. [Concomitant]
     Active Substance: ALCOHOL
     Indication: POST-ANOXIC MYOCLONUS
     Dosage: 7.6 G/10 ML OVER THREE MINS
     Route: 042
  2. HYDROXYTRYPTOPHAN 5 HTP [Concomitant]
     Active Substance: OXITRIPTAN
     Indication: POST-ANOXIC MYOCLONUS
     Dosage: 1200 MG, QD
     Route: 048
  3. XYREM [Suspect]
     Active Substance: SODIUM OXYBATE
     Indication: POST-ANOXIC MYOCLONUS
     Dosage: 1 G, TID
     Route: 048
  4. XYREM [Suspect]
     Active Substance: SODIUM OXYBATE
     Dosage: 2 G, QID
     Route: 048
  5. SODIUM VALPROATE [Concomitant]
     Active Substance: VALPROATE SODIUM
     Indication: POST-ANOXIC MYOCLONUS
     Dosage: 2200 MG, QD
     Route: 042
  6. XYREM [Suspect]
     Active Substance: SODIUM OXYBATE
     Dosage: 2 G, TID
     Route: 048
  7. XYREM [Suspect]
     Active Substance: SODIUM OXYBATE
     Dosage: 2.5 G, Q4H
     Route: 048
  8. XYREM [Suspect]
     Active Substance: SODIUM OXYBATE
     Dosage: 2 G, EVERY 5 HOURS
     Route: 048
  9. LEVETIRACETAM. [Concomitant]
     Active Substance: LEVETIRACETAM
     Indication: POST-ANOXIC MYOCLONUS
     Dosage: 4000 MG, QD
     Route: 048
  10. XYREM [Suspect]
     Active Substance: SODIUM OXYBATE
     Dosage: 2 G, Q4H
     Route: 048
  11. PIRACETAM [Concomitant]
     Active Substance: PIRACETAM
     Indication: POST-ANOXIC MYOCLONUS
     Dosage: 36 G, QD
     Route: 042
  12. XYREM [Suspect]
     Active Substance: SODIUM OXYBATE
     Dosage: 2 G, Q4H
     Route: 048
  13. CLONAZEPAM. [Concomitant]
     Active Substance: CLONAZEPAM
     Indication: POST-ANOXIC MYOCLONUS
     Dosage: 11.25 MG, QD
     Route: 042

REACTIONS (3)
  - Somnolence [Recovering/Resolving]
  - Gastrointestinal disorder [Unknown]
  - Product use in unapproved indication [Unknown]
